FAERS Safety Report 25998826 (Version 2)
Quarter: 2025Q4

REPORT INFORMATION
  Report Type: Spontaneous
  Country: JP (occurrence: JP)
  Receive Date: 20251105
  Receipt Date: 20251114
  Transmission Date: 20260119
  Serious: Yes (Other)
  Sender: ALEXION PHARMACEUTICALS
  Company Number: JP-ASTRAZENECA-202510JPN029665JP

PATIENT
  Age: 4 Decade
  Sex: Female

DRUGS (1)
  1. ULTOMIRIS [Suspect]
     Active Substance: RAVULIZUMAB-CWVZ
     Dosage: 3000 MILLIGRAM ONCE/8 WEEKS
     Route: 065

REACTIONS (3)
  - Breakthrough haemolysis [Unknown]
  - Haemoglobin decreased [Unknown]
  - Blood bilirubin unconjugated increased [Unknown]
